FAERS Safety Report 15424952 (Version 1)
Quarter: 2018Q3

REPORT INFORMATION
  Report Type: Spontaneous
  Country: US (occurrence: US)
  Receive Date: 20180917
  Receipt Date: 20180917
  Transmission Date: 20181010
  Serious: No
  Sender: FDA-Public Use
  Company Number: None

PATIENT
  Age: 56 Year

DRUGS (1)
  1. RITONAVIR TAB 100MG [Suspect]
     Active Substance: RITONAVIR
     Dates: start: 201108, end: 201808

REACTIONS (4)
  - Bone density decreased [None]
  - Blood HIV RNA below assay limit [None]
  - CD4 lymphocytes decreased [None]
  - Drug ineffective [None]

NARRATIVE: CASE EVENT DATE: 20180917
